FAERS Safety Report 24797372 (Version 2)
Quarter: 2025Q1

REPORT INFORMATION
  Report Type: Report from Study
  Country: CA (occurrence: CA)
  Receive Date: 20250102
  Receipt Date: 20250128
  Transmission Date: 20250408
  Serious: Yes (Other)
  Sender: SANDOZ
  Company Number: CA-SANDOZ-SDZ2024CA090806

PATIENT
  Sex: Female

DRUGS (1)
  1. HYRIMOZ [Suspect]
     Active Substance: ADALIMUMAB-ADAZ
     Indication: Colitis ulcerative
     Dosage: 80 MG, QW
     Route: 058
     Dates: start: 20241011

REACTIONS (3)
  - Colitis ulcerative [Unknown]
  - Colitis ulcerative [Unknown]
  - Off label use [Unknown]
